FAERS Safety Report 11938269 (Version 2)
Quarter: 2016Q1

REPORT INFORMATION
  Report Type: Spontaneous
  Country: US (occurrence: US)
  Receive Date: 20160122
  Receipt Date: 20160123
  Transmission Date: 20160526
  Serious: No
  Sender: FDA-Public Use
  Company Number: US-009507513-1601USA007318

PATIENT
  Age: 59 Year
  Sex: Female

DRUGS (1)
  1. BELSOMRA [Suspect]
     Active Substance: SUVOREXANT
     Dosage: UNK
     Dates: end: 20160116

REACTIONS (4)
  - Somnolence [Unknown]
  - Abnormal dreams [Unknown]
  - Feeling abnormal [Unknown]
  - Insomnia [Unknown]
